FAERS Safety Report 6057416-X (Version None)
Quarter: 2009Q1

REPORT INFORMATION
  Report Type: 
  Country: None (occurrence: None)
  Receive Date: 20090129
  Receipt Date: 20090121
  Transmission Date: 20090719
  Serious: Yes (Hospitalization)
  Sender: FDA-Public Use
  Company Number: JP-BAYER-200910197BYL

PATIENT
  Age: 59 Year
  Sex: Male
  Weight: 65 kg

DRUGS (8)
  1. NEXAVAR [Suspect]
     Indication: RENAL CELL CARCINOMA STAGE IV
     Dosage: UNIT DOSE: 200 MG
     Route: 048
     Dates: start: 20080602
  2. NEXAVAR [Suspect]
     Dosage: UNIT DOSE: 200 MG
     Route: 048
     Dates: start: 20080815, end: 20080904
  3. NEXAVAR [Suspect]
     Dosage: TOTAL DAILY DOSE: 800 MG  UNIT DOSE: 200 MG
     Route: 048
     Dates: start: 20080905, end: 20080919
  4. NEXAVAR [Suspect]
     Route: 048
     Dates: start: 20080920, end: 20080920
  5. TAGAMET [Concomitant]
     Route: 048
     Dates: start: 20080602
  6. MOBIC [Concomitant]
     Route: 048
     Dates: start: 20080602
  7. OIF [Concomitant]
     Route: 030
     Dates: start: 20080603
  8. ALESION [Concomitant]
     Route: 048
     Dates: start: 20080704

REACTIONS (2)
  - DIARRHOEA [None]
  - SUBCUTANEOUS ABSCESS [None]
